FAERS Safety Report 5048277-6 (Version None)
Quarter: 2006Q2

REPORT INFORMATION
  Report Type: 
  Country: None (occurrence: None)
  Receive Date: 20060601
  Receipt Date: 20060217
  Transmission Date: 20061013
  Serious: No
  Sender: FDA-Public Use
  Company Number: 2006PV008863

PATIENT
  Age: 73 Year
  Sex: Female

DRUGS (5)
  1. BYETTA [Suspect]
     Indication: DIABETES MELLITUS NON-INSULIN-DEPENDENT
     Dosage: 5 MCG;BID;SC
     Route: 058
     Dates: start: 20051001
  2. ACTOS [Concomitant]
  3. GLIPIZIDE [Concomitant]
  4. FUROSEMIDE [Concomitant]
  5. BENAZEPRIL HYDROCHLORIDE [Concomitant]

REACTIONS (4)
  - DIARRHOEA [None]
  - EARLY SATIETY [None]
  - NAUSEA [None]
  - WEIGHT DECREASED [None]
